FAERS Safety Report 26020415 (Version 1)
Quarter: 2025Q4

REPORT INFORMATION
  Report Type: Spontaneous
  Country: US (occurrence: US)
  Receive Date: 20251110
  Receipt Date: 20251110
  Transmission Date: 20260117
  Serious: No
  Sender: GALPHARM INTERNATIONAL
  Company Number: US-PERRIGO-25US009665

PATIENT
  Sex: Male
  Weight: 79.365 kg

DRUGS (11)
  1. POLYETHYLENE GLYCOL 3350 [Suspect]
     Active Substance: POLYETHYLENE GLYCOL 3350
     Indication: Constipation
     Dosage: 17 G, QD
     Route: 048
  2. POLYETHYLENE GLYCOL 3350 [Suspect]
     Active Substance: POLYETHYLENE GLYCOL 3350
     Dosage: 85 G TO 102 G, EVREY 4 TO 5 DAYS, PRN
     Route: 048
  3. LITHIUM [Concomitant]
     Active Substance: LITHIUM
     Indication: Insomnia
     Dosage: UNKNOWN, UNKNOWN
     Route: 065
     Dates: start: 2000
  4. LITHIUM [Concomitant]
     Active Substance: LITHIUM
     Indication: Depression
  5. SEROQUEL [Concomitant]
     Active Substance: QUETIAPINE FUMARATE
     Indication: Insomnia
     Dosage: UNK
     Route: 065
     Dates: start: 2000
  6. SEROQUEL [Concomitant]
     Active Substance: QUETIAPINE FUMARATE
     Indication: Depression
  7. LAMOTRIGINE [Concomitant]
     Active Substance: LAMOTRIGINE
     Indication: Generalised anxiety disorder
     Dosage: UNK
     Route: 065
     Dates: start: 2000
  8. LAMOTRIGINE [Concomitant]
     Active Substance: LAMOTRIGINE
     Indication: Bipolar disorder
  9. GABAPENTIN [Concomitant]
     Active Substance: GABAPENTIN
     Indication: Insomnia
     Dosage: UNK
     Route: 065
     Dates: start: 2000
  10. GABAPENTIN [Concomitant]
     Active Substance: GABAPENTIN
     Indication: Depression
  11. ATORVASTATIN [Concomitant]
     Active Substance: ATORVASTATIN
     Indication: Blood cholesterol increased
     Dosage: UNK
     Route: 065
     Dates: start: 2015

REACTIONS (2)
  - Drug ineffective [Unknown]
  - Overdose [Unknown]
